FAERS Safety Report 25078792 (Version 1)
Quarter: 2025Q1

REPORT INFORMATION
  Report Type: Spontaneous
  Country: CN (occurrence: CN)
  Receive Date: 20250314
  Receipt Date: 20250314
  Transmission Date: 20250408
  Serious: Yes (Life-Threatening)
  Sender: GRIFOLS
  Company Number: CN-IGSA-BIG0033561

PATIENT
  Age: 79 Year
  Sex: Male

DRUGS (1)
  1. PLASBUMIN-20 [Suspect]
     Active Substance: ALBUMIN HUMAN
     Indication: Protein total decreased
     Dates: start: 20250302, end: 20250302

REACTIONS (3)
  - Anaphylactic shock [Recovering/Resolving]
  - Chest discomfort [Recovering/Resolving]
  - Erythema [Recovering/Resolving]

NARRATIVE: CASE EVENT DATE: 20250302
